FAERS Safety Report 25581145 (Version 2)
Quarter: 2025Q3

REPORT INFORMATION
  Report Type: Spontaneous
  Country: US (occurrence: US)
  Receive Date: 20250718
  Receipt Date: 20250718
  Transmission Date: 20251021
  Serious: No
  Sender: NOVO NORDISK
  Company Number: US-NOVOPROD-1359082

PATIENT
  Age: 53 Year
  Sex: Female

DRUGS (2)
  1. WEGOVY [Suspect]
     Active Substance: SEMAGLUTIDE
     Indication: Weight control
     Dosage: 0.25 MG, QW
     Route: 058
     Dates: start: 20241108
  2. WEGOVY [Suspect]
     Active Substance: SEMAGLUTIDE
     Indication: Weight control
     Dosage: 0.5 MG

REACTIONS (8)
  - Influenza like illness [Recovered/Resolved]
  - Somnolence [Recovered/Resolved]
  - Gastroenteritis viral [Unknown]
  - Weight loss poor [Unknown]
  - Constipation [Unknown]
  - Nausea [Recovered/Resolved]
  - Injection site indentation [Recovered/Resolved]
  - Product communication issue [Recovered/Resolved]

NARRATIVE: CASE EVENT DATE: 20241122
